FAERS Safety Report 8297757-9 (Version None)
Quarter: 2012Q1

REPORT INFORMATION
  Report Type: 
  Country: None (occurrence: None)
  Receive Date: 20120323
  Receipt Date: 20101013
  Transmission Date: 20120608
  Serious: Yes (Hospitalization, Other)
  Sender: FDA-Public Use
  Company Number: PHHY2010US68801

PATIENT
  Age: 21 Year
  Sex: Male

DRUGS (7)
  1. NEXIUM [Concomitant]
  2. PANCREATIC ENZYMES (PANCRELIPASE) [Concomitant]
  3. ADVAIR HFA [Concomitant]
  4. TOBI [Suspect]
     Indication: CYSTIC FIBROSIS
     Dosage: 300 MG, BID, INHALATION
     Route: 055
  5. PULMOZYME [Concomitant]
  6. HYPERTONIC SALINE (NO INGREDIENTS/SUBSTANCES) [Concomitant]
  7. SINGULAIR [Concomitant]

REACTIONS (3)
  - SINUSITIS [None]
  - PARANASAL SINUS HYPERSECRETION [None]
  - SINUS OPERATION [None]
